FAERS Safety Report 9046922 (Version 1)
Quarter: 2013Q1

REPORT INFORMATION
  Report Type: Spontaneous
  Country: US (occurrence: None)
  Receive Date: 20130129
  Receipt Date: 20130129
  Transmission Date: 20140127
  Serious: Yes (Death, Life-Threatening, Hospitalization, Disabling, Congenital Anomaly, Other)
  Sender: FDA-Public Use
  Company Number: None

PATIENT
  Age: 34 Year
  Sex: Female
  Weight: 81.65 kg

DRUGS (1)
  1. CYMBALTA [Suspect]
     Indication: FIBROMYALGIA
     Route: 048
     Dates: start: 20120816, end: 20130122

REACTIONS (14)
  - Drug effect decreased [None]
  - Drug withdrawal syndrome [None]
  - Nausea [None]
  - Dizziness [None]
  - Fatigue [None]
  - Affect lability [None]
  - Anger [None]
  - Crying [None]
  - Abnormal dreams [None]
  - Headache [None]
  - Sleep disorder [None]
  - Tinnitus [None]
  - Fear [None]
  - Amnesia [None]
